FAERS Safety Report 18126926 (Version 2)
Quarter: 2020Q3

REPORT INFORMATION
  Report Type: Report from Study
  Country: US (occurrence: US)
  Receive Date: 20200810
  Receipt Date: 20200816
  Transmission Date: 20201103
  Serious: No
  Sender: FDA-Public Use
  Company Number: NVSC2020US217678

PATIENT
  Age: 44 Year
  Sex: Male

DRUGS (1)
  1. ENTRESTO [Suspect]
     Active Substance: SACUBITRIL\VALSARTAN
     Indication: CARDIAC FAILURE
     Dosage: 24.26 MG, BID
     Route: 048

REACTIONS (4)
  - Product dose omission issue [Unknown]
  - Back pain [Unknown]
  - Dysstasia [Unknown]
  - Hypotension [Unknown]

NARRATIVE: CASE EVENT DATE: 20200801
